FAERS Safety Report 9313076 (Version 1)
Quarter: 2013Q2

REPORT INFORMATION
  Report Type: Spontaneous
  Country: RU (occurrence: RU)
  Receive Date: 20130528
  Receipt Date: 20130528
  Transmission Date: 20140414
  Serious: Yes (Hospitalization, Other)
  Sender: FDA-Public Use
  Company Number: PHHY2013RU053575

PATIENT
  Age: 56 Year
  Sex: Female

DRUGS (3)
  1. ACLASTA [Suspect]
     Indication: OSTEOPOROSIS
     Dosage: UNK
     Route: 042
  2. ACLASTA [Suspect]
     Dosage: UNK
     Route: 042
  3. ACLASTA [Suspect]
     Dosage: UNK
     Route: 042
     Dates: start: 20130307

REACTIONS (5)
  - Jaw fracture [Recovered/Resolved]
  - Brain contusion [Recovered/Resolved]
  - Radius fracture [Recovered/Resolved]
  - Fracture displacement [Recovered/Resolved]
  - Fall [Unknown]
